FAERS Safety Report 4848245-0 (Version None)
Quarter: 2005Q4

REPORT INFORMATION
  Report Type: 
  Country: None (occurrence: None)
  Receive Date: 20051206
  Receipt Date: 20051123
  Transmission Date: 20060501
  Serious: Yes (Other)
  Sender: FDA-Public Use
  Company Number: 2005091971

PATIENT
  Age: 79 Year
  Sex: Female
  Weight: 77.1115 kg

DRUGS (17)
  1. LIPITOR [Suspect]
     Indication: BLOOD CHOLESTEROL INCREASED
     Dosage: 1 IN 1 D ORAL
     Route: 048
  2. NEURONTIN [Suspect]
     Indication: ILL-DEFINED DISORDER
     Dosage: 300 MG (100 MG, 3 IN 1 D) ORAL
     Route: 048
     Dates: start: 20040101
  3. ASPIRIN [Concomitant]
  4. FUROSEMIDE [Concomitant]
  5. ALPRAZOLAM [Concomitant]
  6. PROTONIX [Concomitant]
  7. KLOR-CON [Concomitant]
  8. LOTENSIN [Concomitant]
  9. ZANTAC [Concomitant]
  10. PROPRANOLOL [Concomitant]
  11. FOLIC ACID [Concomitant]
  12. MULTIVITAMIN [Concomitant]
  13. CALCIUM GLUCONATE [Concomitant]
  14. FAMOTIDINE [Concomitant]
  15. DETROL [Concomitant]
  16. TAMOXIFEN [Concomitant]
  17. TIAZAC [Concomitant]

REACTIONS (6)
  - BLOOD CHOLESTEROL DECREASED [None]
  - BLOOD TRIGLYCERIDES INCREASED [None]
  - CAROTID ARTERY OCCLUSION [None]
  - CORONARY ARTERY OCCLUSION [None]
  - SUICIDAL IDEATION [None]
  - TREATMENT NONCOMPLIANCE [None]
